FAERS Safety Report 7386595-7 (Version None)
Quarter: 2011Q1

REPORT INFORMATION
  Report Type: 
  Country: None (occurrence: None)
  Receive Date: 20110331
  Receipt Date: 20110323
  Transmission Date: 20110831
  Serious: Yes (Hospitalization, Other)
  Sender: FDA-Public Use
  Company Number: US-US-EMD SERONO, INC.-7048259

PATIENT
  Sex: Female
  Weight: 109 kg

DRUGS (4)
  1. DETROL [Concomitant]
     Indication: INCONTINENCE
  2. CYMBALTA [Concomitant]
     Indication: FIBROMYALGIA
  3. REBIF [Suspect]
     Indication: MULTIPLE SCLEROSIS
     Route: 058
     Dates: start: 20071217
  4. UNSPECIFIED SEIZURE MEDICATIONS [Concomitant]
     Indication: CONVULSION

REACTIONS (8)
  - BLOOD GLUCOSE INCREASED [None]
  - FIBROMYALGIA [None]
  - HYPERAESTHESIA [None]
  - MULTIPLE SCLEROSIS RELAPSE [None]
  - STAPHYLOCOCCAL INFECTION [None]
  - STRESS [None]
  - INFLUENZA LIKE ILLNESS [None]
  - INJECTION SITE REACTION [None]
